FAERS Safety Report 24091320 (Version 3)
Quarter: 2024Q3

REPORT INFORMATION
  Report Type: Report from Study
  Country: US (occurrence: US)
  Receive Date: 20240715
  Receipt Date: 20240801
  Transmission Date: 20241017
  Serious: Yes (Other)
  Sender: UCB
  Company Number: US-UCBSA-2024035561

PATIENT
  Age: 79 Year
  Sex: Female

DRUGS (1)
  1. LEVETIRACETAM [Suspect]
     Active Substance: LEVETIRACETAM
     Indication: Seizure
     Dosage: 1000 MG 1.5 TABLETS BID

REACTIONS (4)
  - Seizure [Unknown]
  - Stress [Not Recovered/Not Resolved]
  - Memory impairment [Unknown]
  - Wrong technique in product usage process [Unknown]

NARRATIVE: CASE EVENT DATE: 20231101
